FAERS Safety Report 7546296-9 (Version None)
Quarter: 2011Q2

REPORT INFORMATION
  Report Type: 
  Country: None (occurrence: None)
  Receive Date: 20110614
  Receipt Date: 20040408
  Transmission Date: 20111010
  Serious: Yes (Other)
  Sender: FDA-Public Use
  Company Number: PHFR2004GB01226

PATIENT
  Sex: Male

DRUGS (3)
  1. CLOZAPINE [Suspect]
     Indication: SCHIZOPHRENIA
     Dosage: 150MG MANE 400MG NOCTE
     Route: 048
     Dates: start: 19960627
  2. CLOZAPINE [Suspect]
     Dosage: 175MG MANE/450MG NOCTE
  3. CITALOPRAM HYDROBROMIDE [Concomitant]

REACTIONS (5)
  - GAIT DISTURBANCE [None]
  - MALNUTRITION [None]
  - WEIGHT DECREASED [None]
  - CIRCULATORY COLLAPSE [None]
  - MALAISE [None]
